FAERS Safety Report 8882638 (Version 3)
Quarter: 2013Q1

REPORT INFORMATION
  Report Type: Spontaneous
  Country: AT (occurrence: AT)
  Receive Date: 20121102
  Receipt Date: 20130117
  Transmission Date: 20140127
  Serious: Yes (Other)
  Sender: FDA-Public Use
  Company Number: PHHY2012AT099566

PATIENT
  Sex: Female

DRUGS (6)
  1. BIOCEF [Suspect]
     Indication: UPPER RESPIRATORY TRACT INFECTION
     Dosage: 1 DF, UNK
     Route: 048
     Dates: start: 20120429, end: 20120504
  2. METFORMIN [Concomitant]
  3. LISINOPRIL [Concomitant]
  4. EUTHYROX [Concomitant]
  5. RESYL WITH CODEINE [Concomitant]
  6. PEPPERMINT [Concomitant]

REACTIONS (2)
  - Hypogeusia [Not Recovered/Not Resolved]
  - Anosmia [Not Recovered/Not Resolved]
